FAERS Safety Report 15239336 (Version 2)
Quarter: 2018Q3

REPORT INFORMATION
  Report Type: Spontaneous
  Country: US (occurrence: US)
  Receive Date: 20180803
  Receipt Date: 20180831
  Transmission Date: 20181010
  Serious: Yes (Hospitalization, Other)
  Sender: FDA-Public Use
  Company Number: US-GILEAD-2018-0352416

PATIENT
  Age: 55 Year
  Sex: Male
  Weight: 88.6 kg

DRUGS (12)
  1. FLUCONAZOLE. [Concomitant]
     Active Substance: FLUCONAZOLE
  2. YESCARTA [Suspect]
     Active Substance: AXICABTAGENE CILOLEUCEL
     Indication: DIFFUSE LARGE B-CELL LYMPHOMA
     Dosage: SINGLE, INTRAVENOUS
     Route: 042
     Dates: start: 20180723, end: 20180723
  3. ACYCLOVIR                          /00587301/ [Concomitant]
     Active Substance: ACYCLOVIR
  4. KEPPRA [Concomitant]
     Active Substance: LEVETIRACETAM
  5. LEVAQUIN [Concomitant]
     Active Substance: LEVOFLOXACIN
  6. BACTRIM [Concomitant]
     Active Substance: SULFAMETHOXAZOLE\TRIMETHOPRIM
  7. OMEPRAZOLE. [Concomitant]
     Active Substance: OMEPRAZOLE
  8. ENOXAPARIN [Concomitant]
     Active Substance: ENOXAPARIN
  9. GABAPENTIN. [Concomitant]
     Active Substance: GABAPENTIN
  10. CELEBREX [Concomitant]
     Active Substance: CELECOXIB
  11. ALLOPURINOL. [Concomitant]
     Active Substance: ALLOPURINOL
  12. MAGNESIUM OXIDE. [Concomitant]
     Active Substance: MAGNESIUM OXIDE

REACTIONS (3)
  - Encephalopathy [Recovered/Resolved]
  - Cytokine release syndrome [Recovered/Resolved]
  - Pyrexia [Unknown]

NARRATIVE: CASE EVENT DATE: 20180725
